FAERS Safety Report 22622229 (Version 2)
Quarter: 2023Q2

REPORT INFORMATION
  Report Type: Spontaneous
  Country: US (occurrence: US)
  Receive Date: 20230620
  Receipt Date: 20230622
  Transmission Date: 20230721
  Serious: No
  Sender: FDA-Public Use
  Company Number: US-GILEAD-2023-0632983

PATIENT
  Age: 56 Year
  Sex: Male
  Weight: 68.481 kg

DRUGS (1)
  1. LENACAPAVIR [Suspect]
     Active Substance: LENACAPAVIR
     Indication: HIV infection
     Route: 065

REACTIONS (1)
  - Injection site discharge [Recovered/Resolved]

NARRATIVE: CASE EVENT DATE: 20230316
